FAERS Safety Report 11687057 (Version 2)
Quarter: 2016Q1

REPORT INFORMATION
  Report Type: Spontaneous
  Country: IE (occurrence: IE)
  Receive Date: 20151030
  Receipt Date: 20160304
  Transmission Date: 20160525
  Serious: Yes (Life-Threatening, Hospitalization, Other)
  Sender: FDA-Public Use
  Company Number: IE-ASTRAZENECA-2015SF03562

PATIENT
  Age: 56 Year
  Sex: Female
  Weight: 136 kg

DRUGS (5)
  1. ATORVASTATIN [Concomitant]
     Active Substance: ATORVASTATIN
     Indication: DYSLIPIDAEMIA
     Route: 048
  2. FORXIGA [Suspect]
     Active Substance: DAPAGLIFLOZIN
     Indication: HYPOGLYCAEMIA
     Route: 048
     Dates: start: 201505, end: 201507
  3. FORXIGA [Suspect]
     Active Substance: DAPAGLIFLOZIN
     Indication: TYPE 2 DIABETES MELLITUS
     Route: 048
     Dates: start: 201505, end: 201507
  4. JANUMET [Concomitant]
     Active Substance: METFORMIN HYDROCHLORIDE\SITAGLIPTIN PHOSPHATE
     Indication: DIABETES MELLITUS
     Dosage: 1000/50MG, TWO TIMES A DAY.
     Route: 048
     Dates: start: 2009, end: 2015
  5. NOVOMIX [Concomitant]
     Active Substance: INSULIN ASPART
     Indication: DIABETES MELLITUS
     Route: 058
     Dates: start: 2009, end: 2015

REACTIONS (2)
  - Ketoacidosis [Recovered/Resolved]
  - Apparent death [Unknown]

NARRATIVE: CASE EVENT DATE: 201507
